FAERS Safety Report 4762293-0 (Version None)
Quarter: 2005Q3

REPORT INFORMATION
  Report Type: 
  Country: None (occurrence: None)
  Receive Date: 20050907
  Receipt Date: 20050728
  Transmission Date: 20060218
  Serious: Yes (Hospitalization)
  Sender: FDA-Public Use
  Company Number: JP-BOEHRINGER INGELHEIM PHARMACEUTICALS, INC.-2005-BP-13679NB

PATIENT
  Sex: Female

DRUGS (3)
  1. MEXITIL [Suspect]
     Indication: ELECTROCARDIOGRAM QT PROLONGED
     Route: 048
     Dates: start: 20050522, end: 20050707
  2. TENORMIN [Concomitant]
     Indication: ELECTROCARDIOGRAM QT PROLONGED
     Route: 048
     Dates: start: 20050524, end: 20050707
  3. SIGMART [Concomitant]
     Indication: ELECTROCARDIOGRAM QT PROLONGED
     Route: 048
     Dates: start: 20050522, end: 20050707

REACTIONS (4)
  - DRUG ERUPTION [None]
  - EOSINOPHILIA [None]
  - HEPATIC FUNCTION ABNORMAL [None]
  - RASH PAPULAR [None]
